FAERS Safety Report 9537165 (Version 3)
Quarter: 2013Q4

REPORT INFORMATION
  Report Type: Spontaneous
  Country: DZ (occurrence: DZ)
  Receive Date: 20130919
  Receipt Date: 20131104
  Transmission Date: 20140711
  Serious: Yes (Hospitalization)
  Sender: FDA-Public Use
  Company Number: DZ-BAXTER-2013BAX034765

PATIENT
  Age: 16 Year
  Sex: Male
  Weight: 60 kg

DRUGS (3)
  1. FEIBA 500IU 20ML [Suspect]
     Indication: HAEMOPHILIA A WITH ANTI FACTOR VIII
     Route: 042
     Dates: start: 20130829, end: 20130831
  2. FEIBA 500IU 20ML [Suspect]
     Indication: HAEMARTHROSIS
     Dates: start: 2012
  3. IMMUNATE 500 IU [Concomitant]
     Indication: FACTOR VIII DEFICIENCY

REACTIONS (4)
  - Rash [Recovered/Resolved]
  - Urticaria [Recovered/Resolved]
  - Jaundice [Recovered/Resolved]
  - Haematoma [Recovered/Resolved]
